FAERS Safety Report 4611496-4 (Version None)
Quarter: 2005Q1

REPORT INFORMATION
  Report Type: 
  Country: None (occurrence: None)
  Receive Date: 20050315
  Receipt Date: 20050315
  Transmission Date: 20050727
  Serious: No
  Sender: FDA-Public Use
  Company Number: None

PATIENT
  Sex: Male
  Weight: 88.4514 kg

DRUGS (2)
  1. SPORANOX [Suspect]
     Indication: DACRYOCANALICULITIS
     Dosage: 2 PER DAY     1 WEEK/MONT     ORAL
     Route: 048
     Dates: start: 20050205, end: 20050314
  2. SPORANOX [Suspect]
     Indication: EYE INFECTION FUNGAL
     Dosage: 2 PER DAY     1 WEEK/MONT     ORAL
     Route: 048
     Dates: start: 20050205, end: 20050314

REACTIONS (9)
  - ABDOMINAL PAIN [None]
  - CHROMATURIA [None]
  - DIARRHOEA [None]
  - DIZZINESS [None]
  - HEPATIC FUNCTION ABNORMAL [None]
  - HERPES ZOSTER [None]
  - INCREASED APPETITE [None]
  - NAUSEA [None]
  - PAIN [None]
